FAERS Safety Report 9157061 (Version 1)
Quarter: 2013Q1

REPORT INFORMATION
  Report Type: Spontaneous
  Country: US (occurrence: US)
  Receive Date: 20130312
  Receipt Date: 20130312
  Transmission Date: 20140127
  Serious: Yes (Hospitalization, Other)
  Sender: FDA-Public Use
  Company Number: US-BAYER-2013-028314

PATIENT
  Age: 29 Year
  Sex: Female
  Weight: 129.71 kg

DRUGS (18)
  1. YAZ [Suspect]
  2. YASMIN [Suspect]
  3. OCELLA [Suspect]
  4. FENOFIBRATE [Concomitant]
     Dosage: 134 MG, TAKE 1 IN THE MORNING
     Route: 048
  5. BYETTA [Concomitant]
     Dosage: 5 ?G, BID
     Route: 058
  6. METFORMIN HCL [Concomitant]
     Dosage: 1000 MG, BID
     Route: 048
  7. LISINOPRIL [Concomitant]
     Dosage: 20 MG, 1 IN THE MORNING
     Route: 048
  8. TOPIRAMATE [Concomitant]
     Dosage: 25 MG, BID
     Route: 048
  9. DYAZIDE [Concomitant]
     Dosage: 37.5 - 25 MG 1 EVERY DAY
     Route: 048
  10. TRILIPIX [Concomitant]
     Dosage: 135 MG, 1 EVERY DAY
  11. JANUVIA [Concomitant]
     Dosage: 100 MG, QD
     Route: 048
  12. DIFLUCAN [Concomitant]
     Dosage: 150 MG, ONE NOW
     Route: 048
  13. AMOXICILLIN [Concomitant]
     Dosage: 500 MG, 1 EVERY 8 HOURS
  14. IMITREX [Concomitant]
     Indication: MIGRAINE
     Dosage: 100 MG, ONE PRN
     Route: 048
  15. FISH OIL [Concomitant]
     Dosage: 1000 MG, AS DIRECTED
  16. PHENERGAN [PROMETHAZINE] [Concomitant]
     Dosage: 25 MG, 1 TABLET EVERY SIX HOURS PRN
     Route: 048
  17. SUMATRIPTAN [Concomitant]
     Dosage: 100 MG, DAILY
     Route: 048
  18. RED RICE YEAST [Concomitant]
     Dosage: AS DIRECTED

REACTIONS (2)
  - Cholecystitis chronic [None]
  - Deep vein thrombosis [Recovered/Resolved]
